FAERS Safety Report 22390296 (Version 1)
Quarter: 2023Q2

REPORT INFORMATION
  Report Type: Spontaneous
  Country: US (occurrence: None)
  Receive Date: 20230531
  Receipt Date: 20230531
  Transmission Date: 20230721
  Serious: Yes (Hospitalization)
  Sender: FDA-Public Use
  Company Number: None

PATIENT
  Age: 60 Year
  Sex: Female

DRUGS (5)
  1. ENBREL [Suspect]
     Active Substance: ETANERCEPT
     Indication: Rheumatoid arthritis
     Dosage: INJECT 50MG SUBCUTANEOUSLY ONCE WEEKLY AS DIRECTED?
     Route: 058
     Dates: start: 202303
  2. ENBREL [Suspect]
     Active Substance: ETANERCEPT
     Indication: Osteoarthritis
  3. ENBREL [Suspect]
     Active Substance: ETANERCEPT
     Indication: Synovitis
  4. ENBREL [Suspect]
     Active Substance: ETANERCEPT
     Indication: Synovitis
  5. ENBREL [Suspect]
     Active Substance: ETANERCEPT
     Indication: Synovitis

REACTIONS (2)
  - Cerebrovascular accident [None]
  - Headache [None]
